FAERS Safety Report 6017417-4 (Version None)
Quarter: 2008Q4

REPORT INFORMATION
  Report Type: 
  Country: None (occurrence: None)
  Receive Date: 20081223
  Receipt Date: 20081215
  Transmission Date: 20090506
  Serious: Yes (Other)
  Sender: FDA-Public Use
  Company Number: PHBS2008BR06569

PATIENT
  Age: 62 Year

DRUGS (5)
  1. PAMIDRONATE DISODIUM [Suspect]
     Indication: MULTIPLE MYELOMA
     Dosage: 90 MG
     Route: 042
  2. CHEMOTHERAPEUTICS NOS [Concomitant]
     Indication: MULTIPLE MYELOMA
  3. CYCLOPHOSPHAMIDE [Concomitant]
  4. VINCRISTINE [Concomitant]
  5. PREDNISONE TAB [Concomitant]

REACTIONS (11)
  - BONE DISORDER [None]
  - BONE SWELLING [None]
  - INFECTION [None]
  - OEDEMA [None]
  - ORAL DISORDER [None]
  - ORAL PAIN [None]
  - OSTEONECROSIS [None]
  - PANCYTOPENIA [None]
  - PURULENT DISCHARGE [None]
  - STOMATITIS NECROTISING [None]
  - ULCER [None]
